FAERS Safety Report 5441943-X (Version None)
Quarter: 2007Q3

REPORT INFORMATION
  Report Type: 
  Country: None (occurrence: None)
  Receive Date: 20070904
  Receipt Date: 20070829
  Transmission Date: 20080115
  Serious: Yes (Other)
  Sender: FDA-Public Use
  Company Number: A0677371A

PATIENT
  Age: 39 Year
  Sex: Female

DRUGS (6)
  1. VERAMYST [Suspect]
     Route: 045
     Dates: end: 20070829
  2. ANTIDEPRESSANTS [Concomitant]
  3. SEIZURE MEDICATION [Concomitant]
  4. ACID REFLUX MED. [Concomitant]
  5. CONSTIPATION DRUG [Concomitant]
  6. THYROID TAB [Concomitant]

REACTIONS (2)
  - LIVER FUNCTION TEST ABNORMAL [None]
  - NASAL ULCER [None]
